FAERS Safety Report 10045555 (Version 2)
Quarter: 2014Q2

REPORT INFORMATION
  Report Type: Spontaneous
  Country: IT (occurrence: IT)
  Receive Date: 20140328
  Receipt Date: 20140409
  Transmission Date: 20141212
  Serious: Yes (Other)
  Sender: FDA-Public Use
  Company Number: IT-OTSUKA-US-2014-10608

PATIENT
  Age: 14 Year
  Sex: Male

DRUGS (3)
  1. BUSULFEX [Suspect]
     Indication: BONE MARROW TRANSPLANT
     Dosage: UNK
     Route: 065
  2. CYCLOPHOSPHAMIDE [Suspect]
     Indication: BONE MARROW TRANSPLANT
     Dosage: UNK
     Route: 065
  3. MELPHALAN [Suspect]
     Indication: BONE MARROW TRANSPLANT
     Dosage: UNK
     Route: 065

REACTIONS (6)
  - Hypodontia [Recovering/Resolving]
  - Tooth impacted [Recovering/Resolving]
  - Tooth hypoplasia [Recovering/Resolving]
  - Tooth malformation [Recovering/Resolving]
  - Tooth demineralisation [Recovering/Resolving]
  - Hypertension [Unknown]
